FAERS Safety Report 5321824-2 (Version None)
Quarter: 2007Q2

REPORT INFORMATION
  Report Type: 
  Country: None (occurrence: None)
  Receive Date: 20070510
  Receipt Date: 20070507
  Transmission Date: 20071010
  Serious: Yes (Death)
  Sender: FDA-Public Use
  Company Number: CA-BRISTOL-MYERS SQUIBB COMPANY-13772686

PATIENT
  Age: 78 Year
  Sex: Female

DRUGS (6)
  1. AVAPRO [Suspect]
     Indication: HYPERTENSION
     Route: 048
     Dates: start: 20070326
  2. PANTOPRAZOLE SODIUM [Concomitant]
     Indication: GASTROOESOPHAGEAL REFLUX DISEASE
     Route: 048
  3. DIOVAN [Concomitant]
     Indication: HYPERTENSION
     Route: 048
     Dates: end: 20070326
  4. CALCIUM CHLORIDE [Concomitant]
     Route: 048
  5. CENTRUM [Concomitant]
     Route: 048
  6. VITALUX [Concomitant]
     Route: 048

REACTIONS (2)
  - HEPATIC FAILURE [None]
  - HEPATITIS [None]
